FAERS Safety Report 11253269 (Version 1)
Quarter: 2015Q3

REPORT INFORMATION
  Report Type: Spontaneous
  Country: US (occurrence: US)
  Receive Date: 20150709
  Receipt Date: 20150709
  Transmission Date: 20151125
  Serious: No
  Sender: FDA-Public Use
  Company Number: US-TEVA-506327USA

PATIENT
  Age: 57 Year
  Sex: Female
  Weight: 68.1 kg

DRUGS (3)
  1. VENLAFAXINE [Suspect]
     Active Substance: VENLAFAXINE HYDROCHLORIDE
     Indication: HOT FLUSH
     Dosage: 75 MILLIGRAM DAILY;
     Route: 048
     Dates: start: 20140514
  2. VENLAFAXINE [Suspect]
     Active Substance: VENLAFAXINE HYDROCHLORIDE
     Indication: MENOPAUSE
  3. LOSARTAN. [Concomitant]
     Active Substance: LOSARTAN
     Indication: HYPERTENSION
     Dosage: 25 MILLIGRAM DAILY;

REACTIONS (8)
  - Dizziness [Unknown]
  - Activities of daily living impaired [Unknown]
  - Pulse abnormal [Unknown]
  - Off label use [Unknown]
  - Nausea [Unknown]
  - Blood pressure orthostatic decreased [Unknown]
  - Feeling abnormal [Unknown]
  - Nausea [Unknown]

NARRATIVE: CASE EVENT DATE: 20140514
